FAERS Safety Report 10971638 (Version 1)
Quarter: 2015Q1

REPORT INFORMATION
  Report Type: Spontaneous
  Country: US (occurrence: US)
  Receive Date: 20150331
  Receipt Date: 20150331
  Transmission Date: 20150721
  Serious: Yes (Life-Threatening, Hospitalization, Other)
  Sender: FDA-Public Use
  Company Number: US-BAYER-2015-060283

PATIENT
  Age: 92 Year
  Sex: Male

DRUGS (1)
  1. ACETYLSALICYLIC ACID (} 100 MG) [Suspect]
     Active Substance: ASPIRIN
     Indication: ARTHRITIS
     Dosage: 650 MG, QID

REACTIONS (8)
  - Coagulopathy [None]
  - Haematemesis [None]
  - Gastrointestinal tract irritation [None]
  - Tachycardia [None]
  - Melaena [None]
  - Extra dose administered [None]
  - Haemorrhage [None]
  - Hypotension [Recovering/Resolving]
